FAERS Safety Report 7105274-4 (Version None)
Quarter: 2010Q4

REPORT INFORMATION
  Report Type: 
  Country: None (occurrence: None)
  Receive Date: 20101108
  Receipt Date: 20101029
  Transmission Date: 20110411
  Serious: Yes (Death, Life-Threatening, Hospitalization, Other)
  Sender: FDA-Public Use
  Company Number: 2009AC000427

PATIENT
  Age: 69 Year
  Sex: Male

DRUGS (39)
  1. DIGOXIN [Suspect]
     Indication: ATRIAL FIBRILLATION
     Dosage: 0.125 MG; PO
     Route: 048
     Dates: end: 20060901
  2. DIGOXIN [Suspect]
     Indication: PRODUCT USED FOR UNKNOWN INDICATION
     Dosage: 0.125 MG; PO
     Route: 048
     Dates: start: 20070101, end: 20071101
  3. DIGOXIN [Suspect]
     Indication: PRODUCT USED FOR UNKNOWN INDICATION
     Dosage: 0.25 MG; PO
     Route: 048
     Dates: start: 20060901, end: 20070101
  4. *AMIODARONE [Concomitant]
  5. ASPIRIN [Concomitant]
  6. COZAAR [Concomitant]
  7. LASIX [Concomitant]
  8. LIPITOR [Concomitant]
  9. MULTI-VITAMINS [Concomitant]
  10. PREVACID [Concomitant]
  11. PROSCAR [Concomitant]
  12. ZAROXOLYN [Concomitant]
  13. POTASSIUM CHLORIDE [Concomitant]
  14. MAGNESIUM [Concomitant]
  15. DOBUTAMINE INFUSION [Concomitant]
  16. COREG [Concomitant]
  17. AVODART [Concomitant]
  18. SYNTHROID [Concomitant]
  19. IRON SULFATETHIAMIN COMPOUND TAB [Concomitant]
  20. COLCHICINE [Concomitant]
  21. FLOMAX [Concomitant]
  22. FERROUS SULFATE [Concomitant]
  23. CEFTIN [Concomitant]
  24. COMBIVENT [Concomitant]
  25. COUMADIN [Concomitant]
  26. PROCRIT [Concomitant]
  27. ALDACTONE [Concomitant]
  28. POTASSIUM CHLORIDE [Concomitant]
  29. COREG CR [Concomitant]
  30. KAY CIEL DURA-TABS [Concomitant]
  31. MECLIZINE [Concomitant]
  32. EPOGEN [Concomitant]
  33. MEXILITINE [Concomitant]
  34. ANTIVERT [Concomitant]
  35. PEPCID [Concomitant]
  36. ZOCOR [Concomitant]
  37. CALCITRIOL [Concomitant]
  38. TYLENOL-500 [Concomitant]
  39. ZOFRAN [Concomitant]

REACTIONS (12)
  - BLOOD PRESSURE INCREASED [None]
  - CARDIAC FAILURE CONGESTIVE [None]
  - CARDIOMYOPATHY [None]
  - CREPITATIONS [None]
  - DEPRESSION [None]
  - DYSPNOEA EXERTIONAL [None]
  - FATIGUE [None]
  - HYPOKALAEMIA [None]
  - MYOCARDIAL ISCHAEMIA [None]
  - OEDEMA PERIPHERAL [None]
  - VENOUS PRESSURE JUGULAR ABNORMAL [None]
  - VENTRICULAR TACHYCARDIA [None]
